APPROVED DRUG PRODUCT: DOXY-LEMMON
Active Ingredient: DOXYCYCLINE HYCLATE
Strength: EQ 100MG BASE
Dosage Form/Route: TABLET;ORAL
Application: A062581 | Product #001
Applicant: TEVA PHARMACEUTICALS USA INC
Approved: Mar 15, 1985 | RLD: No | RS: No | Type: DISCN